FAERS Safety Report 5132110-8 (Version None)
Quarter: 2006Q4

REPORT INFORMATION
  Report Type: 
  Country: None (occurrence: None)
  Receive Date: 20061017
  Receipt Date: 20061005
  Transmission Date: 20070319
  Serious: Yes (Death)
  Sender: FDA-Public Use
  Company Number: 06H-163-0310649-00

PATIENT
  Sex: Male

DRUGS (2)
  1. FENTANYL INJECTION (FENTANYL CITRATE INJECTION) (FENTANYL) [Suspect]
     Indication: DRUG USE FOR UNKNOWN INDICATION
     Dosage: NOT REPORTED,
  2. HEROIN (DIAMORPHINE) [Suspect]
     Indication: DRUG USE FOR UNKNOWN INDICATION
     Dosage: NOT REPORTED,

REACTIONS (1)
  - OVERDOSE [None]
